FAERS Safety Report 7597594-4 (Version None)
Quarter: 2011Q3

REPORT INFORMATION
  Report Type: 
  Country: None (occurrence: None)
  Receive Date: 20110708
  Receipt Date: 20110624
  Transmission Date: 20111222
  Serious: Yes (Hospitalization)
  Sender: FDA-Public Use
  Company Number: CA-ROCHE-786086

PATIENT
  Sex: Male
  Weight: 78 kg

DRUGS (16)
  1. CAPECITABINE [Suspect]
     Indication: RECTAL CANCER
     Dosage: BID, DAY 2 AND 15 - ON 15 MAY AM DOSE ONLY
     Route: 048
     Dates: start: 20110514, end: 20110515
  2. CAPECITABINE [Suspect]
     Dosage: CYCLE 2 BID, DAY 2 AND 15
     Route: 048
     Dates: start: 20110611
  3. IRINOTECAN HYDROCHLORIDE [Suspect]
     Indication: RECTAL CANCER
     Dosage: CYCLE 2 DELAYED FOR 1 WEEK. DOSE FORM :VIAL
     Route: 042
     Dates: start: 20110513
  4. IRINOTECAN HYDROCHLORIDE [Suspect]
     Route: 042
     Dates: start: 20110610
  5. OXALIPLATIN [Suspect]
     Indication: RECTAL CANCER
     Dosage: DOSE FORM: VIAL
     Route: 042
     Dates: start: 20110513
  6. ADVIL LIQUI-GELS [Concomitant]
     Dosage: 1-2 TABLETS OD
     Route: 048
     Dates: start: 20110401, end: 20110515
  7. DILAUDID [Concomitant]
     Dosage: PER 2 HOURS
     Route: 048
     Dates: start: 20110509, end: 20110515
  8. OXALIPLATIN [Suspect]
     Route: 042
     Dates: start: 20110610
  9. ALBUTEROL [Concomitant]
     Dosage: 2 PUFFS OD
     Dates: start: 20010101
  10. LACTULOSE [Concomitant]
     Dosage: 15 ML (10 GM) OD
     Dates: start: 20110509
  11. TYLENOL-500 [Concomitant]
     Indication: ARTHRITIS
     Dosage: 1-2 TABLETS OD
     Route: 048
     Dates: start: 20110401, end: 20110515
  12. HYDROMORPHONE HCL [Concomitant]
     Route: 048
     Dates: start: 20110509, end: 20110515
  13. METFORMIN HCL [Concomitant]
     Dosage: BID
     Route: 048
     Dates: start: 20110401
  14. DEXAMETHASONE [Concomitant]
     Dosage: 1 TABLET PER CHEMOTHERAPY
     Route: 048
     Dates: start: 20110513
  15. ZOFRAN [Concomitant]
     Dosage: BIDX3 DAYS EACH CYCLE
     Route: 048
     Dates: start: 20110513
  16. METOCLOPRAMIDE [Concomitant]
     Dosage: 1 TABLET PER CHEMOTHERAPY
     Route: 048
     Dates: start: 20110513

REACTIONS (1)
  - PANCREATITIS ACUTE [None]
